FAERS Safety Report 11256622 (Version 1)
Quarter: 2015Q3

REPORT INFORMATION
  Report Type: Spontaneous
  Country: US (occurrence: US)
  Receive Date: 20150709
  Receipt Date: 20150709
  Transmission Date: 20151125
  Serious: No
  Sender: FDA-Public Use
  Company Number: US-PURDUE-USA-2014-0116408

PATIENT
  Sex: Female

DRUGS (2)
  1. BUTRANS [Suspect]
     Active Substance: BUPRENORPHINE
     Indication: PAIN
     Dosage: 15 MCG/HR, WEEKLY
     Route: 062
     Dates: start: 201408
  2. BUTRANS [Suspect]
     Active Substance: BUPRENORPHINE
     Dosage: 10 MCG/HR, WEEKLY
     Route: 062
     Dates: start: 20140801, end: 201408

REACTIONS (11)
  - Headache [Not Recovered/Not Resolved]
  - Hyperhidrosis [Unknown]
  - Drug effect decreased [Recovered/Resolved]
  - Inadequate analgesia [Recovered/Resolved]
  - Blood glucose decreased [Recovered/Resolved]
  - Product adhesion issue [Unknown]
  - Seborrhoea [Unknown]
  - Nausea [Unknown]
  - Chemical injury [Unknown]
  - Eye disorder [Unknown]
  - Drug ineffective [Unknown]
